FAERS Safety Report 13557535 (Version 1)
Quarter: 2017Q2

REPORT INFORMATION
  Report Type: Spontaneous
  Country: CN (occurrence: CN)
  Receive Date: 20170518
  Receipt Date: 20170518
  Transmission Date: 20170830
  Serious: Yes (Death, Hospitalization)
  Sender: FDA-Public Use
  Company Number: CN-BAYER-2016-243662

PATIENT
  Age: 61 Year
  Sex: Male

DRUGS (2)
  1. NEXAVAR [Suspect]
     Active Substance: SORAFENIB
     Indication: RENAL CELL CARCINOMA STAGE IV
     Dosage: 400 MG, BID
     Route: 048
     Dates: start: 20161116, end: 20161216
  2. NEXAVAR [Suspect]
     Active Substance: SORAFENIB
     Indication: METASTASES TO BONE

REACTIONS (10)
  - Aspartate aminotransferase increased [None]
  - Abdominal distension [None]
  - Hepatic function abnormal [None]
  - Blood bilirubin increased [None]
  - Liver injury [Recovering/Resolving]
  - Alanine aminotransferase increased [None]
  - Death [Fatal]
  - Transaminases increased [Recovering/Resolving]
  - Decreased appetite [None]
  - Blood bilirubin increased [Recovering/Resolving]

NARRATIVE: CASE EVENT DATE: 201612
